FAERS Safety Report 4555778-3 (Version None)
Quarter: 2005Q1

REPORT INFORMATION
  Report Type: 
  Country: None (occurrence: None)
  Receive Date: 20050119
  Receipt Date: 20050110
  Transmission Date: 20050727
  Serious: Yes (Hospitalization)
  Sender: FDA-Public Use
  Company Number: PHRM2005FR00522

PATIENT
  Age: 84 Year
  Sex: Female

DRUGS (6)
  1. ENDOTELON [Suspect]
     Dosage: 2 DF/DAY
     Route: 048
  2. RISPERDAL [Suspect]
     Dosage: 1 MG/DAY
     Route: 048
  3. LORAZEPAM [Suspect]
     Dosage: 1 MG/DAY
     Route: 048
  4. SOLIAN [Suspect]
     Dosage: 1 DF, QD
     Route: 048
     Dates: end: 20040222
  5. PLAVIX [Suspect]
     Dosage: 1 DF, QD
     Route: 048
  6. TAREG [Suspect]
     Dosage: 1 DF, QD
     Route: 048

REACTIONS (7)
  - BALANCE DISORDER [None]
  - COGWHEEL RIGIDITY [None]
  - DISORIENTATION [None]
  - DYSKINESIA [None]
  - FALL [None]
  - GAIT DISTURBANCE [None]
  - POSTURE ABNORMAL [None]
